FAERS Safety Report 21526327 (Version 1)
Quarter: 2022Q4

REPORT INFORMATION
  Report Type: Spontaneous
  Country: IL (occurrence: IL)
  Receive Date: 20221031
  Receipt Date: 20221031
  Transmission Date: 20230113
  Serious: Yes (Other)
  Sender: FDA-Public Use
  Company Number: IL-KOREA IPSEN Pharma-2022-29250

PATIENT
  Age: 76 Year
  Sex: Female

DRUGS (2)
  1. LANREOTIDE ACETATE [Suspect]
     Active Substance: LANREOTIDE ACETATE
     Indication: Neuroendocrine tumour
     Route: 065
     Dates: start: 20170625
  2. PROLIA [Concomitant]
     Active Substance: DENOSUMAB
     Indication: Osteoporosis
     Dosage: UNKNOWN
     Route: 065
     Dates: start: 20171120

REACTIONS (3)
  - Spinal fracture [Unknown]
  - Spinal fracture [Unknown]
  - Kyphosis [Unknown]

NARRATIVE: CASE EVENT DATE: 20220101
